FAERS Safety Report 6179123-5 (Version None)
Quarter: 2009Q2

REPORT INFORMATION
  Report Type: 
  Country: None (occurrence: None)
  Receive Date: 20090430
  Receipt Date: 20090420
  Transmission Date: 20091009
  Serious: Yes (Hospitalization, Other)
  Sender: FDA-Public Use
  Company Number: 234398K09USA

PATIENT
  Age: 38 Year
  Sex: Female

DRUGS (3)
  1. REBIF [Suspect]
     Indication: MULTIPLE SCLEROSIS
     Dosage: 44 MCG, 3 IN 1 WEEKS, SUBCUTANEOUS
     Route: 058
     Dates: start: 20080630, end: 20081201
  2. BLOOD PRESSURE PILL (ANTIHYPERTENSIVES) [Concomitant]
  3. WATER PILL (DIURETICS) [Concomitant]

REACTIONS (3)
  - FIBRIN D DIMER INCREASED [None]
  - FLUID RETENTION [None]
  - JOINT SWELLING [None]
